FAERS Safety Report 8348261-0 (Version None)
Quarter: 2012Q2

REPORT INFORMATION
  Report Type: 
  Country: None (occurrence: None)
  Receive Date: 20120509
  Receipt Date: 20120503
  Transmission Date: 20120825
  Serious: Yes (Hospitalization)
  Sender: FDA-Public Use
  Company Number: BR-PFIZER INC-2012103805

PATIENT
  Age: 42 Year
  Sex: Female

DRUGS (2)
  1. LYRICA [Suspect]
     Indication: BACK PAIN
     Dosage: 150MG  IN THE MORNING AND 300MG AT NIGHT
     Route: 048
     Dates: start: 20110101, end: 20120401
  2. LYRICA [Suspect]
     Dosage: 150 MG, 2X/DAY
     Dates: start: 20120401

REACTIONS (2)
  - SPINAL CORD COMPRESSION [None]
  - SPINAL PAIN [None]
